FAERS Safety Report 6310950-7 (Version None)
Quarter: 2009Q3

REPORT INFORMATION
  Report Type: 
  Country: None (occurrence: None)
  Receive Date: 20090817
  Receipt Date: 20090807
  Transmission Date: 20100115
  Serious: Yes (Death)
  Sender: FDA-Public Use
  Company Number: US-BIOGENIDEC-2009BI007441

PATIENT
  Age: 55 Year
  Sex: Female

DRUGS (3)
  1. TYSABRI [Suspect]
     Indication: MULTIPLE SCLEROSIS
     Route: 042
     Dates: start: 20070327, end: 20090126
  2. LEVOXYL [Concomitant]
     Indication: HYPOTHYROIDISM
  3. DESMOPRESSIN ACETATE [Concomitant]
     Indication: VON WILLEBRAND'S DISEASE

REACTIONS (1)
  - MULTIPLE SCLEROSIS [None]
